FAERS Safety Report 7466320-1 (Version None)
Quarter: 2011Q2

REPORT INFORMATION
  Report Type: 
  Country: None (occurrence: None)
  Receive Date: 20110509
  Receipt Date: 20100719
  Transmission Date: 20111010
  Serious: Yes (Hospitalization)
  Sender: FDA-Public Use
  Company Number: US-ALEXION-A201000847

PATIENT
  Sex: Female

DRUGS (2)
  1. DESFERAL                           /00062903/ [Concomitant]
     Indication: BLOOD IRON INCREASED
     Dosage: UNK
  2. SOLIRIS [Suspect]
     Indication: PAROXYSMAL NOCTURNAL HAEMOGLOBINURIA
     Dosage: UNK
     Route: 042

REACTIONS (1)
  - GASTROENTERITIS VIRAL [None]
